FAERS Safety Report 10979187 (Version 5)
Quarter: 2015Q3

REPORT INFORMATION
  Report Type: Report from Study
  Country: FR (occurrence: FR)
  Receive Date: 20150402
  Receipt Date: 20150715
  Transmission Date: 20151125
  Serious: Yes (Life-Threatening, Other)
  Sender: FDA-Public Use
  Company Number: FR-MERCK-1503FRA011701

PATIENT
  Age: 76 Year
  Sex: Female
  Weight: 66.4 kg

DRUGS (64)
  1. POSACONAZOLE [Suspect]
     Active Substance: POSACONAZOLE
     Indication: ASPERGILLUS INFECTION
     Dosage: DOSE:200 ML, UNK
     Route: 042
     Dates: start: 20150312, end: 20150313
  2. PLATELETS [Concomitant]
     Active Substance: HUMAN PLATELET, ALLOGENIC
     Indication: PLATELET COUNT DECREASED
     Dosage: 1 BAG, QD
     Route: 042
     Dates: start: 20150310, end: 20150311
  3. DALTEPARIN SODIUM [Concomitant]
     Active Substance: DALTEPARIN SODIUM
     Indication: THROMBOSIS PROPHYLAXIS
     Dosage: 8000 IU, QD
     Route: 042
     Dates: start: 20150305, end: 20150317
  4. ACYCLOVIR. [Concomitant]
     Active Substance: ACYCLOVIR
     Indication: INFECTION PROPHYLAXIS
     Dosage: 500 MG, ONCE; FORMULATION: LOZENGE
     Route: 042
     Dates: start: 20150305, end: 20150305
  5. FLUCONAZOLE. [Concomitant]
     Active Substance: FLUCONAZOLE
     Indication: INFECTION PROPHYLAXIS
     Dosage: 400 MG, QD
     Route: 042
     Dates: start: 20150227, end: 20150309
  6. LETROZOLE. [Concomitant]
     Active Substance: LETROZOLE
     Indication: ADJUVANT THERAPY
     Dosage: 2.5 MG, QD
     Route: 048
     Dates: start: 20130223
  7. GLUCOSE-1-PHOSPHATE DISODIUM [Concomitant]
     Dosage: 613.8 MMOL, ONCE
     Route: 042
     Dates: start: 20150312, end: 20150312
  8. GLUCOSE-1-PHOSPHATE DISODIUM [Concomitant]
     Indication: PROPHYLAXIS
     Dosage: 1023 MMOL, ONCE
     Route: 042
     Dates: start: 20150308, end: 20150308
  9. FUROSEMIDE. [Concomitant]
     Active Substance: FUROSEMIDE
     Indication: NEPHROPATHY TOXIC
     Dosage: 20 MG, ONCE
     Route: 042
     Dates: start: 20150307, end: 20150307
  10. CEFTAZIDIME. [Concomitant]
     Active Substance: CEFTAZIDIME
     Dosage: 1 G, ONCE
     Route: 042
     Dates: start: 20150313, end: 20150313
  11. BISOPROLOL FUMARATE. [Concomitant]
     Active Substance: BISOPROLOL FUMARATE
     Indication: HYPERTENSION
     Dosage: 0.625 MG, QD
     Route: 054
     Dates: start: 20150307, end: 20150313
  12. BISOPROLOL FUMARATE. [Concomitant]
     Active Substance: BISOPROLOL FUMARATE
     Indication: HYPERTENSION
     Dosage: 1.25 MG, QD
     Route: 048
     Dates: start: 20150314, end: 20150318
  13. POSACONAZOLE [Suspect]
     Active Substance: POSACONAZOLE
     Dosage: DOSE: 150 UNITS NOT PROVIDED
     Route: 042
     Dates: start: 20150314, end: 20150317
  14. CORDARONE [Concomitant]
     Active Substance: AMIODARONE HYDROCHLORIDE
     Indication: ATRIAL FIBRILLATION
     Dosage: 50 MG, QD
     Route: 048
     Dates: start: 20150223
  15. GLUCOSE-1-PHOSPHATE DISODIUM [Concomitant]
     Dosage: 613.8 MMOL, ONCE
     Route: 042
     Dates: start: 20150307, end: 20150307
  16. GLUCOSE-1-PHOSPHATE DISODIUM [Concomitant]
     Dosage: 818.4 MMOL, QD
     Route: 042
     Dates: start: 20150313, end: 20150315
  17. FUROSEMIDE. [Concomitant]
     Active Substance: FUROSEMIDE
     Dosage: 20 MG, QD
     Route: 042
     Dates: start: 20150311, end: 20150312
  18. HYDROCORTISONE. [Concomitant]
     Active Substance: HYDROCORTISONE
     Indication: PROPHYLAXIS
     Dosage: 100 MG, QD
     Route: 042
     Dates: start: 20150306, end: 20150315
  19. CEFTAZIDIME. [Concomitant]
     Active Substance: CEFTAZIDIME
     Indication: INFECTION PROPHYLAXIS
     Dosage: 2 G, BID
     Route: 042
     Dates: start: 20150313, end: 20150315
  20. RAMIPRIL. [Concomitant]
     Active Substance: RAMIPRIL
     Indication: HYPERTENSION
     Dosage: 2.5 MG, TID
     Route: 048
     Dates: start: 20150310, end: 20150311
  21. BLOOD CELLS, RED [Concomitant]
     Active Substance: HUMAN BLOOD CELLS
     Dosage: 1 BAG, ONCE
     Route: 042
     Dates: start: 20150308, end: 20150308
  22. POTASSIUM CHLORIDE. [Concomitant]
     Active Substance: POTASSIUM CHLORIDE
     Dosage: 9 G, QD
     Route: 042
     Dates: start: 20150311, end: 20150312
  23. GLUCOSE-1-PHOSPHATE DISODIUM [Concomitant]
     Indication: PROPHYLAXIS
     Dosage: 409.2 MMOL, QD
     Route: 042
     Dates: start: 20150305, end: 20150305
  24. DEXTROSE. [Concomitant]
     Active Substance: DEXTROSE
     Indication: PROPHYLAXIS AGAINST DEHYDRATION
     Dosage: 500 ML, QD
     Route: 042
     Dates: start: 20150312, end: 20150314
  25. CALCIUM CHLORIDE. [Concomitant]
     Active Substance: CALCIUM CHLORIDE
     Indication: PROPHYLAXIS
     Dosage: 5 ML, QD
     Route: 042
     Dates: start: 20150308, end: 20150315
  26. VORICONAZOLE. [Concomitant]
     Active Substance: VORICONAZOLE
     Indication: INFECTION PROPHYLAXIS
     Dosage: 200 MG, ONCE
     Route: 045
     Dates: start: 20150311, end: 20150311
  27. POTASSIUM CHLORIDE. [Concomitant]
     Active Substance: POTASSIUM CHLORIDE
     Dosage: 14 G, ONCE
     Route: 042
     Dates: start: 20150315, end: 20150315
  28. MAGNESIUM PIDOLATE [Concomitant]
     Active Substance: MAGNESIUM PIDOLATE
     Dosage: 3 G, QD
     Route: 042
     Dates: start: 20150308, end: 20150312
  29. VITAMINS (UNSPECIFIED) [Concomitant]
     Active Substance: VITAMINS
     Indication: VITAMIN SUPPLEMENTATION
     Dosage: 20 ML, QD
     Route: 042
     Dates: start: 20150305, end: 20150318
  30. BECILAN [Concomitant]
     Active Substance: PYRIDOXINE
     Indication: VITAMIN SUPPLEMENTATION
     Dosage: 500 MG, QD
     Route: 042
     Dates: start: 20150306, end: 20150316
  31. OMEPRAZOLE. [Concomitant]
     Active Substance: OMEPRAZOLE
     Indication: DRUG TOXICITY PROPHYLAXIS
     Dosage: 20 MG, QD
     Route: 042
     Dates: start: 20150305, end: 20150311
  32. IMIPENEM [Concomitant]
     Active Substance: IMIPENEM
     Indication: INFECTION PROPHYLAXIS
     Dosage: 1 G, TID
     Route: 042
     Dates: start: 20150311, end: 20150311
  33. CORDARONE [Concomitant]
     Active Substance: AMIODARONE HYDROCHLORIDE
     Indication: ARRHYTHMIA PROPHYLAXIS
     Dosage: 200 MG, QD
     Route: 048
     Dates: start: 20150305
  34. BLOOD CELLS, RED [Concomitant]
     Active Substance: HUMAN BLOOD CELLS
     Indication: ACUTE MYELOID LEUKAEMIA
     Dosage: 1 BAG, ONCE
     Route: 042
     Dates: start: 20150306, end: 20150306
  35. POTASSIUM CHLORIDE. [Concomitant]
     Active Substance: POTASSIUM CHLORIDE
     Indication: PROPHYLAXIS
     Dosage: 6 G, ONCE
     Route: 042
     Dates: start: 20150305, end: 20150305
  36. POTASSIUM CHLORIDE. [Concomitant]
     Active Substance: POTASSIUM CHLORIDE
     Dosage: 14 G, ONCE
     Route: 042
     Dates: start: 20150314, end: 20150318
  37. GLUCOSE-1-PHOSPHATE DISODIUM [Concomitant]
     Indication: PROPHYLAXIS
     Dosage: 818.4 MMOL, ONCE
     Route: 047
     Dates: start: 20150309, end: 20150309
  38. FOLINIC ACID [Concomitant]
     Active Substance: LEUCOVORIN
     Indication: VITAMIN SUPPLEMENTATION
     Dosage: 50 MG, QD
     Route: 042
     Dates: start: 20150305, end: 20150329
  39. AMIODARONE HYDROCHLORIDE. [Concomitant]
     Active Substance: AMIODARONE HYDROCHLORIDE
     Indication: ATRIAL FIBRILLATION
     Dosage: 200 MG, ONCE
     Route: 045
     Dates: start: 20150315, end: 20150315
  40. GENTAMICIN SULFATE. [Concomitant]
     Active Substance: GENTAMICIN SULFATE
     Indication: INFECTION PROPHYLAXIS
     Dosage: 80 MG, BID
     Route: 048
     Dates: start: 20150223, end: 20150316
  41. MICARDIS [Concomitant]
     Active Substance: TELMISARTAN
     Indication: HYPERTENSION
     Dosage: 20 MG, QD
     Route: 048
     Dates: start: 20150305, end: 20150309
  42. POSACONAZOLE [Suspect]
     Active Substance: POSACONAZOLE
     Indication: ASPERGILLUS INFECTION
     Dosage: DOSE: 3 TABLET, UNK
     Route: 048
     Dates: start: 20150317, end: 20150319
  43. POTASSIUM CHLORIDE. [Concomitant]
     Active Substance: POTASSIUM CHLORIDE
     Dosage: 7 G, ONCE
     Route: 042
     Dates: start: 20150310, end: 20150310
  44. MAGNESIUM PIDOLATE [Concomitant]
     Active Substance: MAGNESIUM PIDOLATE
     Indication: PROPHYLAXIS
     Dosage: 2 G, QD
     Route: 042
     Dates: start: 20150305, end: 20150307
  45. MAGNESIUM PIDOLATE [Concomitant]
     Active Substance: MAGNESIUM PIDOLATE
     Dosage: 4 G, QD
     Route: 042
     Dates: start: 20150313, end: 20150314
  46. MAGNESIUM PIDOLATE [Concomitant]
     Active Substance: MAGNESIUM PIDOLATE
     Dosage: 5 G, ONCE
     Route: 042
     Dates: start: 20150315, end: 20150315
  47. GLUCOSE-1-PHOSPHATE DISODIUM [Concomitant]
     Dosage: 409.2 MMOL, QD
     Route: 042
     Dates: start: 20150310, end: 20150311
  48. OLIMEL [Concomitant]
     Active Substance: AMINO ACIDS\DEXTROSE\SOYBEAN OIL
     Indication: PARENTERAL NUTRITION
     Dosage: 1000 ML, QD
     Route: 042
     Dates: start: 20150305, end: 20150311
  49. ALIZAPRIDE [Concomitant]
     Active Substance: ALIZAPRIDE
     Indication: NAUSEA
     Dosage: 2 ML, ONCE
     Route: 042
     Dates: start: 20150306, end: 20150306
  50. TAZOBACTAM [Concomitant]
     Active Substance: TAZOBACTAM
     Indication: INFECTION PROPHYLAXIS
     Dosage: 4 G, TID
     Route: 042
     Dates: start: 20150226, end: 20150310
  51. IMIPENEM [Concomitant]
     Active Substance: IMIPENEM
     Dosage: 1 G, ONCE
     Route: 042
     Dates: start: 20150312, end: 20150312
  52. VANCOMYCIN [Concomitant]
     Active Substance: VANCOMYCIN
     Indication: INFECTION PROPHYLAXIS
     Dosage: 2 G, QD
     Route: 042
     Dates: start: 20150225, end: 20150305
  53. BLOOD CELLS, RED [Concomitant]
     Active Substance: HUMAN BLOOD CELLS
     Dosage: 1 BAG, ONCE
     Route: 042
     Dates: start: 20150310, end: 20150310
  54. PLATELETS [Concomitant]
     Active Substance: HUMAN PLATELET, ALLOGENIC
     Indication: PLATELET COUNT DECREASED
     Dosage: 1 BAG, ONCE
     Route: 042
     Dates: start: 20150306, end: 20150306
  55. PLATELETS [Concomitant]
     Active Substance: HUMAN PLATELET, ALLOGENIC
     Dosage: 1 BAG, ONCE
     Route: 042
     Dates: start: 20150313, end: 20150313
  56. POTASSIUM CHLORIDE. [Concomitant]
     Active Substance: POTASSIUM CHLORIDE
     Dosage: 10 G, QD
     Route: 042
     Dates: start: 20150307, end: 20150309
  57. POTASSIUM CHLORIDE. [Concomitant]
     Active Substance: POTASSIUM CHLORIDE
     Dosage: 12 G, QD
     Route: 042
     Dates: start: 20150313, end: 20150314
  58. NONAN [Concomitant]
     Active Substance: MINERALS
     Indication: VITAMIN SUPPLEMENTATION
     Dosage: 40 ML, QD
     Route: 042
     Dates: start: 20150305, end: 20150318
  59. ACYCLOVIR. [Concomitant]
     Active Substance: ACYCLOVIR
     Dosage: 500 MG, BID
     Route: 042
     Dates: start: 20150306, end: 20150309
  60. TOBRAMYCIN. [Concomitant]
     Active Substance: TOBRAMYCIN
     Indication: INFECTION PROPHYLAXIS
     Dosage: 100 MG, QD
     Route: 042
     Dates: start: 20150313, end: 20150316
  61. ZELITREX [Concomitant]
     Active Substance: VALACYCLOVIR HYDROCHLORIDE
     Indication: OPPORTUNISTIC INFECTION PROPHYLAXIS
     Dosage: 500 MG, QD
     Route: 048
     Dates: start: 20150310, end: 20150322
  62. BISOPROLOL FUMARATE. [Concomitant]
     Active Substance: BISOPROLOL FUMARATE
     Dosage: UNK
  63. RAMIPRIL. [Concomitant]
     Active Substance: RAMIPRIL
     Dosage: 3.75 MG, QD
     Route: 048
     Dates: start: 20150312, end: 20150314
  64. IMIPENEM [Concomitant]
     Active Substance: IMIPENEM
     Indication: INFECTION PROPHYLAXIS
     Dosage: 1 G, BID
     Route: 042
     Dates: start: 20150310, end: 20150310

REACTIONS (2)
  - Atrial fibrillation [Recovered/Resolved]
  - Dermatitis exfoliative [Recovered/Resolved]

NARRATIVE: CASE EVENT DATE: 20150315
